FAERS Safety Report 5317829-8 (Version None)
Quarter: 2007Q2

REPORT INFORMATION
  Report Type: 
  Country: None (occurrence: None)
  Receive Date: 20070430
  Receipt Date: 20070419
  Transmission Date: 20071010
  Serious: Yes (Hospitalization)
  Sender: FDA-Public Use
  Company Number: 2007-157553-NL

PATIENT
  Age: 85 Year
  Sex: Female

DRUGS (7)
  1. MIRTAZAPINE [Suspect]
     Indication: DEPRESSION
     Dosage: 15 MG, ORAL
     Route: 048
     Dates: start: 20070401, end: 20070418
  2. CARVEDILOL [Concomitant]
  3. FUROSEMIDE [Concomitant]
  4. PERINDOPRIL [Concomitant]
  5. DONEPEZIL HCL [Concomitant]
  6. TEMAZEPAM [Concomitant]
  7. ACETAMINOPHEN W/ CODEINE [Concomitant]

REACTIONS (6)
  - AGITATION [None]
  - ANGER [None]
  - DELIRIUM [None]
  - DISORIENTATION [None]
  - FRUSTRATION [None]
  - HALLUCINATION, VISUAL [None]
